FAERS Safety Report 13994721 (Version 1)
Quarter: 2017Q3

REPORT INFORMATION
  Report Type: Spontaneous
  Country: US (occurrence: US)
  Receive Date: 20170921
  Receipt Date: 20170921
  Transmission Date: 20171128
  Serious: Yes (Life-Threatening, Hospitalization, Disabling, Other)
  Sender: FDA-Public Use
  Company Number: None

PATIENT
  Age: 64 Year
  Sex: Male
  Weight: 65.25 kg

DRUGS (2)
  1. CELLCEPT [Suspect]
     Active Substance: MYCOPHENOLATE MOFETIL\MYCOPHENOLATE MOFETIL HYDROCHLORIDE
     Indication: POLYMYOSITIS
  2. ACTHAR [Concomitant]
     Active Substance: CORTICOTROPIN

REACTIONS (6)
  - Sepsis [None]
  - Impaired driving ability [None]
  - Ulcer [None]
  - Staphylococcal infection [None]
  - Osteonecrosis [None]
  - Quality of life decreased [None]

NARRATIVE: CASE EVENT DATE: 20170708
